FAERS Safety Report 5848987-4 (Version None)
Quarter: 2008Q3

REPORT INFORMATION
  Report Type: 
  Country: None (occurrence: None)
  Receive Date: 20080818
  Receipt Date: 20080818
  Transmission Date: 20090109
  Serious: Yes (Other)
  Sender: FDA-Public Use
  Company Number: None

PATIENT
  Age: 53 Year
  Sex: Female
  Weight: 58.9676 kg

DRUGS (2)
  1. CIPROFLOXACIN HCL [Suspect]
     Indication: NEPHROLITHIASIS
     Dosage: 1 TABLET 2 TIMES DAILY ORAL
     Route: 048
     Dates: start: 20080514, end: 20080517
  2. CIPROFLOXACIN HCL [Suspect]
     Indication: PROPHYLAXIS
     Dosage: 1 TABLET 2 TIMES DAILY ORAL
     Route: 048
     Dates: start: 20080514, end: 20080517

REACTIONS (1)
  - TENDON RUPTURE [None]
